FAERS Safety Report 21170319 (Version 2)
Quarter: 2022Q3

REPORT INFORMATION
  Report Type: Spontaneous
  Country: US (occurrence: None)
  Receive Date: 20220804
  Receipt Date: 20220918
  Transmission Date: 20221026
  Serious: No
  Sender: FDA-Public Use
  Company Number: 2022A270863

PATIENT
  Sex: Male
  Weight: 91.2 kg

DRUGS (4)
  1. BUDESONIDE\FORMOTEROL\GLYCOPYRRONIUM [Suspect]
     Active Substance: BUDESONIDE\FORMOTEROL\GLYCOPYRRONIUM
     Indication: Emphysema
     Dosage: 160MCG/9MCG/4.8MCG BREZTRI, 2 PUFFS TWICE DAILY
     Route: 055
     Dates: start: 2021
  2. BUDESONIDE\FORMOTEROL\GLYCOPYRRONIUM [Suspect]
     Active Substance: BUDESONIDE\FORMOTEROL\GLYCOPYRRONIUM
     Indication: Wheezing
     Dosage: 160MCG/9MCG/4.8MCG BREZTRI, 2 PUFFS TWICE DAILY
     Route: 055
     Dates: start: 2021
  3. BUDESONIDE\FORMOTEROL\GLYCOPYRRONIUM [Suspect]
     Active Substance: BUDESONIDE\FORMOTEROL\GLYCOPYRRONIUM
     Indication: Chronic obstructive pulmonary disease
     Dosage: 160MCG/9MCG/4.8MCG BREZTRI, 2 PUFFS TWICE DAILY
     Route: 055
     Dates: start: 2021
  4. BUDESONIDE\FORMOTEROL\GLYCOPYRRONIUM [Suspect]
     Active Substance: BUDESONIDE\FORMOTEROL\GLYCOPYRRONIUM
     Indication: Dyspnoea
     Dosage: 160MCG/9MCG/4.8MCG BREZTRI, 2 PUFFS TWICE DAILY
     Route: 055
     Dates: start: 2021

REACTIONS (5)
  - Dyspnoea [Unknown]
  - Wheezing [Unknown]
  - Emphysema [Unknown]
  - Wrong technique in device usage process [Unknown]
  - Device delivery system issue [Unknown]
